FAERS Safety Report 8463790-7 (Version None)
Quarter: 2012Q2

REPORT INFORMATION
  Report Type: 
  Country: None (occurrence: None)
  Receive Date: 20120625
  Receipt Date: 20120620
  Transmission Date: 20120825
  Serious: Yes (Death, Hospitalization, Other)
  Sender: FDA-Public Use
  Company Number: GB-ABBOTT-12P-167-0918725-00

PATIENT
  Sex: Female

DRUGS (3)
  1. HUMIRA [Suspect]
     Indication: RHEUMATOID ARTHRITIS
     Route: 058
     Dates: start: 20040715
  2. STEROIDS [Concomitant]
     Indication: PRODUCT USED FOR UNKNOWN INDICATION
     Dosage: LOW DOSE
  3. METHOTREXATE [Concomitant]
     Indication: PRODUCT USED FOR UNKNOWN INDICATION
     Dates: end: 20120301

REACTIONS (15)
  - SEPSIS [None]
  - PANCYTOPENIA [None]
  - MYOCARDIAL ISCHAEMIA [None]
  - PSEUDOMONAL BACTERAEMIA [None]
  - RHEUMATOID ARTHRITIS [None]
  - CARDIAC FAILURE [None]
  - INFECTED SKIN ULCER [None]
  - CONFUSIONAL STATE [None]
  - LEFT VENTRICULAR DYSFUNCTION [None]
  - LEUKOPENIA [None]
  - PNEUMONIA [None]
  - CARDIAC FAILURE CONGESTIVE [None]
  - ATRIAL FIBRILLATION [None]
  - WOUND INFECTION [None]
  - INFLAMMATORY MARKER INCREASED [None]
